FAERS Safety Report 6429383-8 (Version None)
Quarter: 2009Q4

REPORT INFORMATION
  Report Type: 
  Country: None (occurrence: None)
  Receive Date: 20091105
  Receipt Date: 20090203
  Transmission Date: 20100525
  Serious: No
  Sender: FDA-Public Use
  Company Number: US-ABBOTT-09P-163-0501941-00

PATIENT
  Sex: Female

DRUGS (4)
  1. KALETRA [Suspect]
     Indication: ACQUIRED IMMUNODEFICIENCY SYNDROME
     Dosage: 200/50MG 2 TABS BID
     Route: 048
     Dates: start: 20051222
  2. COMBIVIR [Concomitant]
     Indication: DRUG USE FOR UNKNOWN INDICATION
  3. LOVASA [Concomitant]
     Indication: DRUG USE FOR UNKNOWN INDICATION
  4. VITA S FORTE [Concomitant]
     Indication: DRUG USE FOR UNKNOWN INDICATION
     Route: 048

REACTIONS (1)
  - NEPHROLITHIASIS [None]
